FAERS Safety Report 20426847 (Version 1)
Quarter: 2022Q1

REPORT INFORMATION
  Report Type: Report from Study
  Country: US (occurrence: US)
  Receive Date: 20220204
  Receipt Date: 20220204
  Transmission Date: 20220423
  Serious: No
  Sender: FDA-Public Use
  Company Number: US-EXELIXIS-CABO-21046152

PATIENT
  Sex: Male

DRUGS (3)
  1. CABOMETYX [Suspect]
     Active Substance: CABOZANTINIB S-MALATE
     Indication: Renal cancer
     Dosage: 20MG, QD ALTERNATING WITH 40MG, QD
     Route: 048
     Dates: start: 20200606
  2. CABOMETYX [Suspect]
     Active Substance: CABOZANTINIB S-MALATE
     Dosage: 20MG, QD FOR 5DAYS WITH 40MG QD FOR 2 DAYS IN A WEEK
     Route: 048
     Dates: start: 20210313, end: 20211110
  3. CABOMETYX [Suspect]
     Active Substance: CABOZANTINIB S-MALATE
     Dosage: 20 MG, QD
     Route: 048

REACTIONS (3)
  - Musculoskeletal chest pain [Unknown]
  - Dyspnoea [Unknown]
  - Malignant neoplasm progression [Unknown]
